FAERS Safety Report 6725294-9 (Version None)
Quarter: 2010Q2

REPORT INFORMATION
  Report Type: 
  Country: None (occurrence: None)
  Receive Date: 20100513
  Receipt Date: 20100513
  Transmission Date: 20101027
  Serious: No
  Sender: FDA-Public Use
  Company Number: None

PATIENT
  Sex: Female
  Weight: 52.1637 kg

DRUGS (1)
  1. CELEBREX [Suspect]
     Indication: PAIN
     Dosage: 1 CAPSULE 1 A DAY
     Dates: start: 20100302

REACTIONS (3)
  - DEHYDRATION [None]
  - DRUG HYPERSENSITIVITY [None]
  - VOMITING [None]
